FAERS Safety Report 9506818 (Version 1)
Quarter: 2013Q3

REPORT INFORMATION
  Report Type: Spontaneous
  Country: CH (occurrence: CH)
  Receive Date: 20130909
  Receipt Date: 20130909
  Transmission Date: 20140515
  Serious: Yes (Hospitalization, Other)
  Sender: FDA-Public Use
  Company Number: CH-009507513-1309CHE002360

PATIENT
  Age: 30 Year
  Sex: Male

DRUGS (3)
  1. REMERON [Suspect]
     Dosage: 120 MG (4DF), ONCE
     Route: 048
     Dates: start: 20130630, end: 20130630
  2. QUETIAPINE FUMARATE [Suspect]
     Dosage: 1300 MG(52 DF), ONCE
     Route: 048
     Dates: start: 20130630, end: 20130630
  3. ZOLPIDEM TARTRATE [Suspect]
     Dosage: 100MG DAILY
     Route: 048
     Dates: start: 20130630, end: 20130630

REACTIONS (3)
  - Coma [Recovered/Resolved]
  - Tachycardia [Unknown]
  - Suicide attempt [Recovered/Resolved]
